FAERS Safety Report 6919954-4 (Version None)
Quarter: 2010Q3

REPORT INFORMATION
  Report Type: 
  Country: None (occurrence: None)
  Receive Date: 20100809
  Receipt Date: 20100730
  Transmission Date: 20110219
  Serious: Yes (Life-Threatening)
  Sender: FDA-Public Use
  Company Number: 2010000013

PATIENT
  Age: 31 Year
  Sex: Female

DRUGS (2)
  1. NITROLINGUAL [Suspect]
     Indication: CHEST PAIN
     Dosage: RESPIRATORY
     Route: 055
     Dates: start: 20100601, end: 20100601
  2. SYNTOCINON [Concomitant]

REACTIONS (2)
  - HAEMOGLOBIN DECREASED [None]
  - POSTPARTUM HAEMORRHAGE [None]
